FAERS Safety Report 8396141-7 (Version None)
Quarter: 2012Q2

REPORT INFORMATION
  Report Type: 
  Country: None (occurrence: None)
  Receive Date: 20120530
  Receipt Date: 20120522
  Transmission Date: 20120825
  Serious: Yes (Other)
  Sender: FDA-Public Use
  Company Number: US-GLAXOSMITHKLINE-A0978604A

PATIENT
  Age: 42 Year
  Sex: Female

DRUGS (4)
  1. ZONISAMIDE [Concomitant]
  2. UNSPECIFIED MEDICATION [Concomitant]
  3. ALBUTEROL [Concomitant]
  4. LAMICTAL [Suspect]
     Indication: PARTIAL SEIZURES
     Dosage: 300MG TWICE PER DAY
     Route: 048
     Dates: start: 20040101

REACTIONS (4)
  - ROAD TRAFFIC ACCIDENT [None]
  - DRUG SCREEN FALSE POSITIVE [None]
  - HEAD INJURY [None]
  - LOSS OF CONSCIOUSNESS [None]
